FAERS Safety Report 13853672 (Version 1)
Quarter: 2017Q3

REPORT INFORMATION
  Report Type: Spontaneous
  Country: US (occurrence: US)
  Receive Date: 20170810
  Receipt Date: 20170810
  Transmission Date: 20171127
  Serious: No
  Sender: FDA-Public Use
  Company Number: None

PATIENT
  Age: 67 Year
  Sex: Female
  Weight: 59.85 kg

DRUGS (17)
  1. CYCLOBENZAPRINE. [Concomitant]
     Active Substance: CYCLOBENZAPRINE
  2. COLESTIPOL [Concomitant]
     Active Substance: COLESTIPOL
  3. VENLAFAXINE [Concomitant]
     Active Substance: VENLAFAXINE HYDROCHLORIDE
  4. METFORMIN [Concomitant]
     Active Substance: METFORMIN HYDROCHLORIDE
  5. BIOTIN [Concomitant]
     Active Substance: BIOTIN
  6. GINGER ROOT [Concomitant]
     Active Substance: GINGER
  7. LOSARTAN. [Concomitant]
     Active Substance: LOSARTAN
  8. LOW DOSE ASPIRIN [Concomitant]
     Active Substance: ASPIRIN
  9. VITAMIN D3 [Concomitant]
     Active Substance: CHOLECALCIFEROL
  10. CALCIUM [Concomitant]
     Active Substance: CALCIUM
  11. TYLENOL ARTHRITIS PAIN [Concomitant]
     Active Substance: ACETAMINOPHEN
  12. VITAMIN C [Concomitant]
     Active Substance: ASCORBIC ACID
  13. KIRKLAND SIGNATURE ALLER TEC ALLERGY [Concomitant]
     Active Substance: CETIRIZINE HYDROCHLORIDE
  14. SLEEP AID MAXIMUM STRENGTH [Suspect]
     Active Substance: DIPHENHYDRAMINE HYDROCHLORIDE
     Indication: INSOMNIA
     Dosage: 1 SOFTGEL; AT BEDTIME; ORAL
     Route: 048
     Dates: start: 20170726, end: 20170809
  15. HYDROCHLOROTHIAZIDE. [Concomitant]
     Active Substance: HYDROCHLOROTHIAZIDE
  16. AMLODIPINE [Concomitant]
     Active Substance: AMLODIPINE BESYLATE
  17. CPAP MACHINE [Concomitant]

REACTIONS (2)
  - Somnolence [None]
  - Restless legs syndrome [None]

NARRATIVE: CASE EVENT DATE: 20170726
